FAERS Safety Report 10772755 (Version 2)
Quarter: 2016Q1

REPORT INFORMATION
  Report Type: Other
  Country: US (occurrence: US)
  Receive Date: 20150207
  Receipt Date: 20160219
  Transmission Date: 20160525
  Serious: Yes (Disabling)
  Sender: FDA-Public Use
  Company Number: US-ACORDA-ACO_106178_2014

PATIENT
  Sex: Female
  Weight: 62.13 kg

DRUGS (5)
  1. AMPYRA [Suspect]
     Active Substance: DALFAMPRIDINE
     Indication: MULTIPLE SCLEROSIS
     Dosage: 10 MG, Q 12 HRS
     Route: 048
  2. CELEXA [Concomitant]
     Active Substance: CITALOPRAM HYDROBROMIDE
     Indication: PRODUCT USED FOR UNKNOWN INDICATION
     Dosage: UNK
  3. OXYBUTYNIN CHLORIDE. [Concomitant]
     Active Substance: OXYBUTYNIN CHLORIDE
     Indication: PRODUCT USED FOR UNKNOWN INDICATION
     Dosage: UNK
  4. AMPYRA [Suspect]
     Active Substance: DALFAMPRIDINE
     Dosage: 10 MG, QD
     Route: 048
  5. RITALIN [Concomitant]
     Active Substance: METHYLPHENIDATE HYDROCHLORIDE
     Indication: PRODUCT USED FOR UNKNOWN INDICATION
     Dosage: UNK

REACTIONS (7)
  - Therapy cessation [Recovered/Resolved]
  - Somnolence [Recovered/Resolved]
  - Musculoskeletal stiffness [Recovered/Resolved]
  - Inappropriate schedule of drug administration [Unknown]
  - Fatigue [Recovered/Resolved]
  - Bedridden [Unknown]
  - Gastrointestinal motility disorder [Recovered/Resolved]

NARRATIVE: CASE EVENT DATE: 2014
